FAERS Safety Report 19782961 (Version 1)
Quarter: 2021Q3

REPORT INFORMATION
  Report Type: Spontaneous
  Country: US (occurrence: US)
  Receive Date: 20210902
  Receipt Date: 20210902
  Transmission Date: 20211014
  Serious: No
  Sender: FDA-Public Use
  Company Number: US-ENDO PHARMACEUTICALS INC-2021-001139

PATIENT
  Age: 77 Year
  Sex: Female
  Weight: 65.77 kg

DRUGS (3)
  1. AMOXICILLIN. [Concomitant]
     Active Substance: AMOXICILLIN
     Indication: PRODUCT USED FOR UNKNOWN INDICATION
  2. NEOPOLYMIX [Concomitant]
     Indication: PRODUCT USED FOR UNKNOWN INDICATION
  3. PREDNISONE. [Suspect]
     Active Substance: PREDNISONE
     Indication: EAR SWELLING
     Dosage: UNK UNKNOWN, UNKNOWN
     Route: 065

REACTIONS (4)
  - Body temperature increased [Recovering/Resolving]
  - Headache [Unknown]
  - Nervousness [Unknown]
  - Ear swelling [Not Recovered/Not Resolved]

NARRATIVE: CASE EVENT DATE: 20210120
